FAERS Safety Report 19487543 (Version 1)
Quarter: 2021Q3

REPORT INFORMATION
  Report Type: Spontaneous
  Country: CN (occurrence: CN)
  Receive Date: 20210702
  Receipt Date: 20210702
  Transmission Date: 20211014
  Serious: Yes (Other)
  Sender: FDA-Public Use
  Company Number: CN-ROCHE-2854617

PATIENT
  Age: 46 Year
  Sex: Female

DRUGS (6)
  1. OXALIPLATIN. [Concomitant]
     Active Substance: OXALIPLATIN
     Dosage: ON 19 DEC 2018, 09 JAN 2019, 30 JAN 2019 AND 20 FEB 2019
     Route: 042
     Dates: start: 20181219
  2. XELODA [Suspect]
     Active Substance: CAPECITABINE
     Dosage: ON 19 DEC 2018, 09 JAN 2019, 30 JAN 2019 AND 20 FEB 2019
     Route: 048
     Dates: start: 20181219
  3. AVASTIN [Suspect]
     Active Substance: BEVACIZUMAB
     Dosage: ON 19 DEC 2018, 09 JAN 2019, 30 JAN 2019 AND 20 FEB 2019
     Route: 065
     Dates: start: 20181219
  4. XELODA [Suspect]
     Active Substance: CAPECITABINE
     Indication: RECTAL CANCER METASTATIC
     Dosage: ON 10 OCT 2018, 31 OCT 2018, AND 24 NOV 2018
     Route: 048
     Dates: start: 20181010
  5. AVASTIN [Suspect]
     Active Substance: BEVACIZUMAB
     Indication: RECTAL CANCER METASTATIC
     Dosage: ON 10 OCT 2018, 31 OCT 2018, AND 24 NOV 2018
     Route: 065
     Dates: start: 20181010
  6. OXALIPLATIN. [Concomitant]
     Active Substance: OXALIPLATIN
     Dosage: ON 10 OCT 2018, 31 OCT 2018, AND 24 NOV 2018
     Route: 042
     Dates: start: 20181010

REACTIONS (3)
  - Hepatic function abnormal [Recovering/Resolving]
  - Myelosuppression [Recovered/Resolved]
  - Pneumonitis [Recovering/Resolving]
